FAERS Safety Report 21739870 (Version 1)
Quarter: 2022Q4

REPORT INFORMATION
  Report Type: Spontaneous
  Country: IT (occurrence: IT)
  Receive Date: 20221216
  Receipt Date: 20221216
  Transmission Date: 20230113
  Serious: Yes (Other)
  Sender: FDA-Public Use
  Company Number: IT-PFIZER INC-PV202200118465

PATIENT
  Age: 10 Year
  Sex: Male

DRUGS (3)
  1. ADRIAMYCIN [Suspect]
     Active Substance: DOXORUBICIN HYDROCHLORIDE
     Indication: Desmoplastic small round cell tumour
     Dosage: 40 MG/M2 (ON DAYS 1 AND 2)
  2. VINCRISTINE SULFATE [Suspect]
     Active Substance: VINCRISTINE SULFATE
     Indication: Desmoplastic small round cell tumour
     Dosage: 1.5 MG/M2 (ON DAYS 1, 8 AND 15)
  3. IFOSFAMIDE [Suspect]
     Active Substance: IFOSFAMIDE
     Indication: Desmoplastic small round cell tumour
     Dosage: 3 G/M2 ON DAYS 1 AND 2

REACTIONS (5)
  - Neutropenia [Unknown]
  - Thrombocytopenia [Unknown]
  - Transaminases increased [Unknown]
  - Anaemia [Unknown]
  - Stomatitis [Unknown]
